FAERS Safety Report 5214858-X (Version None)
Quarter: 2007Q1

REPORT INFORMATION
  Report Type: 
  Country: None (occurrence: None)
  Receive Date: 20070122
  Receipt Date: 20070122
  Transmission Date: 20070707
  Serious: Yes (Other)
  Sender: FDA-Public Use
  Company Number: None

PATIENT
  Sex: Male

DRUGS (1)
  1. INFLIXIMAB [Suspect]
     Indication: RHEUMATOID ARTHRITIS
     Dosage: 5 MG/KG EVERY 8 WEEKS IV DRIP
     Route: 041

REACTIONS (3)
  - IMMUNE SYSTEM DISORDER [None]
  - MULTIFOCAL MOTOR NEUROPATHY [None]
  - RADIAL NERVE PALSY [None]
